FAERS Safety Report 8585682 (Version 1)
Quarter: 2012Q4

REPORT INFORMATION
  Report Type: 
  Country: US (occurrence: US)
  Receive Date: 20120911
  Receipt Date: 20120911
  Transmission Date: 20130627
  Serious: Yes (Hospitalization)
  Sender: FDA-Public Use
  Company Number: US-GLAXOSMITHKLINE-A0972428A

PATIENT
  Age: 35 Year
  Sex: Female

DRUGS (2)
  1. FLOLAN [Suspect]
     Indication: COR PULMONALE CHRONIC
     Dosage: 21NGKM Continuous
     Route: 042
     Dates: start: 20110525
  2. REVATIO [Concomitant]
     Dosage: 20MG Three times per day
     Route: 048

REACTIONS (3)
  - Platelet count decreased [Unknown]
  - Catheter site pain [Unknown]
  - Catheter site erythema [Unknown]
